FAERS Safety Report 10190070 (Version 1)
Quarter: 2014Q2

REPORT INFORMATION
  Report Type: Spontaneous
  Country: CA (occurrence: CA)
  Receive Date: 20140522
  Receipt Date: 20140522
  Transmission Date: 20141212
  Serious: Yes (Hospitalization)
  Sender: FDA-Public Use
  Company Number: CA-AMGEN-CANSP2014036352

PATIENT
  Age: 72 Year
  Sex: Female

DRUGS (1)
  1. PROLIA [Suspect]
     Indication: OSTEOPOROSIS POSTMENOPAUSAL
     Dosage: 60 MG, Q6MO
     Route: 058
     Dates: start: 20131030

REACTIONS (4)
  - Coronary artery occlusion [Recovering/Resolving]
  - Myocardial ischaemia [Recovering/Resolving]
  - Abdominal pain upper [Recovering/Resolving]
  - Drug effect decreased [Unknown]
